FAERS Safety Report 22028052 (Version 1)
Quarter: 2023Q1

REPORT INFORMATION
  Report Type: Spontaneous
  Country: US (occurrence: US)
  Receive Date: 20230223
  Receipt Date: 20230223
  Transmission Date: 20230418
  Serious: No
  Sender: FDA-Public Use
  Company Number: US-LUPIN PHARMACEUTICALS INC.-2023-01309

PATIENT

DRUGS (3)
  1. ALBUTEROL SULFATE [Suspect]
     Active Substance: ALBUTEROL SULFATE
     Indication: Barrett^s oesophagus
     Dosage: UNK, QID, 4 TIMES A DAY
  2. ALBUTEROL SULFATE [Suspect]
     Active Substance: ALBUTEROL SULFATE
     Indication: Gastrooesophageal reflux disease
  3. LANSOPRAZOLE [Concomitant]
     Active Substance: LANSOPRAZOLE
     Indication: Gastrooesophageal reflux disease
     Dosage: UNK
     Route: 065

REACTIONS (5)
  - Drug dose omission by device [Unknown]
  - Device delivery system issue [Unknown]
  - Device deposit issue [Unknown]
  - Product use in unapproved indication [Unknown]
  - No adverse event [Unknown]
